FAERS Safety Report 5939342-7 (Version None)
Quarter: 2008Q4

REPORT INFORMATION
  Report Type: 
  Country: None (occurrence: None)
  Receive Date: 20081103
  Receipt Date: 20081022
  Transmission Date: 20090506
  Serious: Yes (Other)
  Sender: FDA-Public Use
  Company Number: JP-ABBOTT-08P-087-0482251-00

PATIENT
  Sex: Male
  Weight: 61 kg

DRUGS (10)
  1. SEVOFLURANE [Suspect]
     Indication: MAINTENANCE OF ANAESTHESIA
     Dosage: 1.5-2.5%
     Route: 055
     Dates: start: 20080417, end: 20080417
  2. PROPOFOL [Suspect]
     Indication: INDUCTION OF ANAESTHESIA
     Route: 042
     Dates: start: 20080417, end: 20080417
  3. ROCURONIUM BROMIDE [Suspect]
     Indication: MUSCLE RELAXANT THERAPY
     Route: 042
     Dates: start: 20080417, end: 20080417
  4. LIDOCAINE [Suspect]
     Indication: LOCAL ANAESTHESIA
     Route: 042
     Dates: start: 20080417, end: 20080417
  5. FENTANYL CITRATE [Concomitant]
     Indication: INDUCTION OF ANAESTHESIA
     Route: 042
     Dates: start: 20080417, end: 20080417
  6. ATROPINE SULFATE [Concomitant]
     Indication: INDUCTION OF ANAESTHESIA
     Dosage: UNKNOWN
     Route: 042
     Dates: start: 20080417, end: 20080417
  7. NITROUS OXIDE [Concomitant]
     Indication: GENERAL ANAESTHESIA
     Route: 055
     Dates: start: 20080417, end: 20080417
  8. OXYGEN [Concomitant]
     Indication: MAINTENANCE OF ANAESTHESIA
     Route: 055
     Dates: start: 20080417, end: 20080417
  9. CEFAZOLIN SODIUM [Concomitant]
     Indication: INFECTION PROPHYLAXIS
     Route: 042
     Dates: start: 20080417, end: 20080417
  10. DICLOFENAC SODIUM [Concomitant]
     Indication: POSTOPERATIVE ANALGESIA
     Route: 054
     Dates: start: 20080417, end: 20080417

REACTIONS (1)
  - RHABDOMYOLYSIS [None]
